FAERS Safety Report 9215962 (Version 3)
Quarter: 2013Q3

REPORT INFORMATION
  Report Type: Spontaneous
  Country: US (occurrence: None)
  Receive Date: 20130403
  Receipt Date: 20130828
  Transmission Date: 20140515
  Serious: Yes (Other)
  Sender: FDA-Public Use
  Company Number: 2013/068

PATIENT
  Age: 7 Year
  Sex: Male

DRUGS (2)
  1. DIVALPROEX SODIUM [Suspect]
     Route: 048
     Dates: start: 20130213, end: 20130218
  2. FOCALIN XR [Suspect]
     Indication: ATTENTION DEFICIT/HYPERACTIVITY DISORDER
     Dates: end: 201301

REACTIONS (12)
  - Diarrhoea [None]
  - Muscle twitching [None]
  - Tremor [None]
  - Blood pressure decreased [None]
  - Pallor [None]
  - Eye movement disorder [None]
  - Angina pectoris [None]
  - Initial insomnia [None]
  - Palpitations [None]
  - Weight decreased [None]
  - Decreased appetite [None]
  - Drug effect decreased [None]
